FAERS Safety Report 6945340-7 (Version None)
Quarter: 2010Q3

REPORT INFORMATION
  Report Type: 
  Country: None (occurrence: None)
  Receive Date: 20100827
  Receipt Date: 20100826
  Transmission Date: 20110219
  Serious: Yes (Hospitalization)
  Sender: FDA-Public Use
  Company Number: KR-ROCHE-607258

PATIENT
  Sex: Female
  Weight: 66 kg

DRUGS (6)
  1. TRASTUZUMAB [Suspect]
     Dosage: FORM REPORTED AS INFUSION
     Route: 042
     Dates: start: 20080905
  2. TRASTUZUMAB [Suspect]
     Route: 042
  3. PERTUZUMAB [Suspect]
     Dosage: FORM REPORTED AS INFUSION
     Route: 042
     Dates: start: 20080904
  4. DOCETAXEL [Suspect]
     Dosage: FORM: INFUSION
     Route: 042
     Dates: start: 20080905
  5. DOCETAXEL [Suspect]
     Dosage: DOSE REDUCED AND PERMANENTLY DISCONTINUED.
     Route: 042
     Dates: start: 20080925, end: 20090210
  6. HEXAMIDINE [Concomitant]
     Dates: start: 20080904, end: 20080921

REACTIONS (3)
  - CELLULITIS [None]
  - DIARRHOEA [None]
  - HERPES ZOSTER [None]
